FAERS Safety Report 6274434-7 (Version None)
Quarter: 2009Q3

REPORT INFORMATION
  Report Type: 
  Country: None (occurrence: None)
  Receive Date: 20090720
  Receipt Date: 20090624
  Transmission Date: 20100115
  Serious: Yes (Hospitalization)
  Sender: FDA-Public Use
  Company Number: AU-ASTRAZENECA-2009SE03291

PATIENT
  Age: 74 Year
  Sex: Female

DRUGS (3)
  1. NEXIUM [Suspect]
     Route: 048
     Dates: start: 20071004, end: 20071011
  2. AMOXICILLIN [Suspect]
     Route: 048
     Dates: start: 20071004, end: 20071011
  3. CLARITHROMYCIN [Suspect]
     Route: 048
     Dates: start: 20071004, end: 20071011

REACTIONS (3)
  - LIVER FUNCTION TEST ABNORMAL [None]
  - OVERDOSE [None]
  - RASH [None]
